FAERS Safety Report 23633171 (Version 1)
Quarter: 2024Q1

REPORT INFORMATION
  Report Type: Spontaneous
  Country: US (occurrence: None)
  Receive Date: 20240314
  Receipt Date: 20240314
  Transmission Date: 20240410
  Serious: Yes (Other)
  Sender: FDA-Public Use
  Company Number: None

PATIENT
  Age: 69 Year
  Sex: Male
  Weight: 83.25 kg

DRUGS (12)
  1. ORGOVYX [Suspect]
     Active Substance: RELUGOLIX
     Indication: Prostate cancer metastatic
     Dosage: OTHER STRENGTH : 120 MG;?OTHER QUANTITY : 1 TABLET(S);?OTHER FREQUENCY : DIFF;?OTHER ROUTE : NEW STA
     Route: 050
  2. ATORVASTATIN [Concomitant]
     Active Substance: ATORVASTATIN
  3. CARVEDILOL [Concomitant]
     Active Substance: CARVEDILOL
  4. LISINOPRIL [Concomitant]
     Active Substance: LISINOPRIL
  5. ASPIRIN [Concomitant]
     Active Substance: ASPIRIN
  6. ORGOVYX [Concomitant]
     Active Substance: RELUGOLIX
  7. STOOL SOFTENER (DOCUSATE) [Concomitant]
     Active Substance: DOCUSATE
  8. Krill [Concomitant]
  9. D [Concomitant]
  10. PEPCID [Concomitant]
     Active Substance: FAMOTIDINE
  11. BEANO [Concomitant]
     Active Substance: ASPERGILLUS NIGER .ALPHA.-GALACTOSIDASE
  12. LACTASE [Concomitant]
     Active Substance: LACTASE

REACTIONS (17)
  - Headache [None]
  - Hot flush [None]
  - Insomnia [None]
  - Fatigue [None]
  - Constipation [None]
  - Weight increased [None]
  - Affect lability [None]
  - Brain fog [None]
  - Palpitations [None]
  - Nightmare [None]
  - Dizziness [None]
  - Angina pectoris [None]
  - Night sweats [None]
  - Middle insomnia [None]
  - Dysphagia [None]
  - Mental impairment [None]
  - Insomnia [None]
